FAERS Safety Report 6266250-7 (Version None)
Quarter: 2009Q3

REPORT INFORMATION
  Report Type: 
  Country: None (occurrence: None)
  Receive Date: 20090713
  Receipt Date: 20090706
  Transmission Date: 20100115
  Serious: No
  Sender: FDA-Public Use
  Company Number: DE-AVENTIS-200911387DE

PATIENT
  Age: 34 Year
  Sex: Female

DRUGS (6)
  1. ARAVA [Suspect]
     Indication: ARTHRALGIA
     Route: 048
     Dates: end: 20090514
  2. ARTHROTEC [Concomitant]
     Indication: ARTHRALGIA
     Dosage: DOSE: 1-2 DAILY
     Route: 048
     Dates: end: 20090514
  3. CALCIUM [Concomitant]
     Indication: DRUG USE FOR UNKNOWN INDICATION
     Dosage: DOSE: NOT REPORTED
     Route: 048
  4. VITAMIN D3 [Concomitant]
     Indication: DRUG USE FOR UNKNOWN INDICATION
     Dosage: DOSE: NOT REPORTED
     Route: 048
  5. AMITRYPTILIN [Concomitant]
     Indication: PAIN MANAGEMENT
     Route: 048
  6. PREDNISOLONE [Concomitant]
     Indication: ARTHRALGIA
     Route: 048

REACTIONS (1)
  - DRUG EXPOSURE DURING PREGNANCY [None]
